FAERS Safety Report 25962062 (Version 1)
Quarter: 2025Q4

REPORT INFORMATION
  Report Type: Spontaneous
  Country: US (occurrence: None)
  Receive Date: 20251024
  Receipt Date: 20251024
  Transmission Date: 20260118
  Serious: Yes (Other)
  Sender: FDA-CTU
  Company Number: None

PATIENT
  Age: 64 Year
  Sex: Male
  Weight: 99 kg

DRUGS (14)
  1. CARVEDILOL PHOSPHATE [Suspect]
     Active Substance: CARVEDILOL PHOSPHATE
     Indication: Blood pressure abnormal
     Dosage: 1 CAPSULE ORAL ?
     Route: 048
     Dates: start: 20250716
  2. METOPROLOL [Suspect]
     Active Substance: METOPROLOL
  3. carvedilol CR 10 mg 24 hr capsule [Concomitant]
  4. levothyroxine 50 mcg tablet [Concomitant]
  5. pioglitazone 15 mg tablet [Concomitant]
  6. ALLOPURINOL [Concomitant]
     Active Substance: ALLOPURINOL
  7. Farxiga 10 mg tablet [Concomitant]
  8. LISINOPRIL [Concomitant]
     Active Substance: LISINOPRIL
  9. AMLODIPINE BESYLATE [Concomitant]
     Active Substance: AMLODIPINE BESYLATE
  10. ROSUVASTATIN [Concomitant]
     Active Substance: ROSUVASTATIN
  11. Men^s 50 Plus Daily Formula 400-20-370 mcg tablet [Concomitant]
  12. b 12 and 1 complex vitamins tablet [Concomitant]
  13. OREGANO OIL ORAL [Concomitant]
  14. ECHINACEA [Concomitant]
     Active Substance: ECHINACEA, UNSPECIFIED

REACTIONS (6)
  - Product substitution issue [None]
  - Gait disturbance [None]
  - Confusional state [None]
  - Visual impairment [None]
  - Aggression [None]
  - Quality of life decreased [None]

NARRATIVE: CASE EVENT DATE: 20250820
